FAERS Safety Report 7394968-1 (Version None)
Quarter: 2011Q2

REPORT INFORMATION
  Report Type: 
  Country: None (occurrence: None)
  Receive Date: 20110405
  Receipt Date: 20110329
  Transmission Date: 20111010
  Serious: Yes (Other)
  Sender: FDA-Public Use
  Company Number: US-PFIZER INC-2010180789

PATIENT
  Sex: Female
  Weight: 62.132 kg

DRUGS (5)
  1. PREMARIN [Suspect]
     Dosage: 0.625 MG, UNK
     Route: 048
  2. PREMARIN [Suspect]
     Indication: ATROPHY
  3. PREMARIN [Suspect]
     Indication: MENOPAUSAL SYMPTOMS
  4. LEVOTHYROXINE [Concomitant]
     Dosage: 1.37 MG, UNK
  5. PREMARIN [Suspect]
     Indication: VULVOVAGINAL DRYNESS
     Dosage: UNK
     Dates: start: 20050101

REACTIONS (8)
  - VULVOVAGINAL DRYNESS [None]
  - VOMITING [None]
  - URINARY TRACT INFECTION [None]
  - SWELLING FACE [None]
  - VAGINAL HAEMORRHAGE [None]
  - ACNE [None]
  - DRUG INEFFECTIVE [None]
  - ATROPHIC VULVOVAGINITIS [None]
